FAERS Safety Report 8195503-0 (Version None)
Quarter: 2012Q1

REPORT INFORMATION
  Report Type: 
  Country: None (occurrence: None)
  Receive Date: 20120308
  Receipt Date: 20120306
  Transmission Date: 20120608
  Serious: Yes (Other)
  Sender: FDA-Public Use
  Company Number: PHHY2011US55771

PATIENT
  Sex: Male

DRUGS (10)
  1. EXTRA STRENGTH TYLENOL [Concomitant]
     Dosage: 1000 MG, (Q4-6H, PRN)
     Route: 048
     Dates: start: 20111211
  2. IBUPROFEN [Concomitant]
     Dosage: 800 MG, Q4-6HOURS, PRN
     Route: 048
     Dates: start: 20111211
  3. MOBIC [Concomitant]
     Dosage: 15 MG, DAILY
     Route: 048
     Dates: start: 20110724
  4. GILENYA [Suspect]
     Indication: MULTIPLE SCLEROSIS
     Dosage: 0.5 MG, DAILY
     Route: 048
     Dates: start: 20110414
  5. IMITREX [Concomitant]
     Dosage: 6 MG, DAILY
     Route: 058
     Dates: start: 20110724
  6. AMBIEN [Concomitant]
     Dosage: 10 MG, PRN (AT BED TIME)
     Route: 048
     Dates: start: 20110724
  7. NUVIGIL [Concomitant]
     Dosage: 150 MG, PRN (DAILY)
     Route: 048
     Dates: start: 20111211
  8. CLARITIN [Concomitant]
     Dosage: 10 MG, DAILY
     Route: 048
     Dates: start: 20110724
  9. PRILOSEC [Concomitant]
     Dosage: 40 MG, DAILY
     Route: 048
     Dates: start: 20110724
  10. LYRICA [Concomitant]
     Dosage: 300 MG, BID
     Route: 048

REACTIONS (10)
  - PYREXIA [None]
  - WOUND COMPLICATION [None]
  - HAEMATOCRIT DECREASED [None]
  - VISUAL IMPAIRMENT [None]
  - BLOOD PRESSURE INCREASED [None]
  - LYMPHOCYTE COUNT DECREASED [None]
  - HAEMOGLOBIN DECREASED [None]
  - HEADACHE [None]
  - POST PROCEDURAL HAEMORRHAGE [None]
  - NEUTROPHIL PERCENTAGE INCREASED [None]
